FAERS Safety Report 6847073-4 (Version None)
Quarter: 2010Q3

REPORT INFORMATION
  Report Type: 
  Country: None (occurrence: None)
  Receive Date: 20100716
  Receipt Date: 20100707
  Transmission Date: 20110219
  Serious: No
  Sender: FDA-Public Use
  Company Number: US-BIOGENIDEC-2010BI023428

PATIENT
  Sex: Female

DRUGS (1)
  1. TYSABRI [Suspect]
     Indication: MULTIPLE SCLEROSIS
     Route: 042
     Dates: start: 20070816

REACTIONS (12)
  - GASTRIC DISORDER [None]
  - INFLAMMATION [None]
  - JOINT SPRAIN [None]
  - LOSS OF CONTROL OF LEGS [None]
  - MEDICAL DEVICE SITE REACTION [None]
  - MULTIPLE SCLEROSIS [None]
  - MUSCLE SPASMS [None]
  - OPTIC NEURITIS [None]
  - PERONEAL NERVE PALSY [None]
  - PUPILS UNEQUAL [None]
  - STRESS [None]
  - VOMITING [None]
